FAERS Safety Report 8926341 (Version 1)
Quarter: 2012Q4

REPORT INFORMATION
  Report Type: 
  Country: FR (occurrence: FR)
  Receive Date: 20121126
  Receipt Date: 20121126
  Transmission Date: 20130627
  Serious: Yes (Hospitalization, Other)
  Sender: FDA-Public Use
  Company Number: PHHY2012FR105370

PATIENT
  Age: 60 Year
  Sex: Female

DRUGS (7)
  1. LEPONEX [Suspect]
     Dosage: 25 mg, QD
     Route: 048
     Dates: start: 20120823, end: 20120830
  2. LEPONEX [Suspect]
     Dosage: 25 mg, BID
     Route: 048
     Dates: start: 20120830, end: 20120906
  3. LEPONEX [Suspect]
     Dosage: 25 mg, TID
     Route: 048
     Dates: start: 20120906, end: 20120914
  4. LEPONEX [Suspect]
     Dosage: 25 mg, QID
     Route: 048
     Dates: start: 20120914, end: 20121005
  5. HEPT-A-MYL [Concomitant]
     Dosage: 187.8 mg, QID
     Route: 048
  6. LAMOTRIGINE [Concomitant]
     Dosage: 100 mg, QD
  7. SERESTA [Concomitant]
     Dosage: 10 mg, QD
     Route: 048

REACTIONS (9)
  - Agranulocytosis [Recovered/Resolved]
  - White blood cell count decreased [Recovered/Resolved]
  - Pyrexia [Recovered/Resolved]
  - Pneumonia [Recovered/Resolved]
  - Huntington^s disease [Not Recovered/Not Resolved]
  - Sepsis [Recovered/Resolved]
  - Livedo reticularis [Recovered/Resolved]
  - Vitamin B12 deficiency [Unknown]
  - Haemoglobin decreased [Unknown]
